FAERS Safety Report 13939082 (Version 1)
Quarter: 2017Q3

REPORT INFORMATION
  Report Type: Spontaneous
  Country: US (occurrence: None)
  Receive Date: 20170906
  Receipt Date: 20170906
  Transmission Date: 20171127
  Serious: No
  Sender: FDA-Public Use
  Company Number: None

PATIENT
  Age: 44 Year
  Sex: Female

DRUGS (1)
  1. GILENYA [Suspect]
     Active Substance: FINGOLIMOD HYDROCHLORIDE

REACTIONS (5)
  - Depression [None]
  - Cognitive disorder [None]
  - Speech disorder [None]
  - Bladder disorder [None]
  - Pneumonia [None]

NARRATIVE: CASE EVENT DATE: 20170715
